FAERS Safety Report 17647664 (Version 1)
Quarter: 2020Q2

REPORT INFORMATION
  Report Type: Report from Study
  Country: None (occurrence: BR)
  Receive Date: 20200409
  Receipt Date: 20200409
  Transmission Date: 20200713
  Serious: Yes (Other)
  Sender: FDA-Public Use
  Company Number: BR-ABBVIE-20K-020-3354978-00

PATIENT
  Age: 44 Year
  Sex: Male
  Weight: 76 kg

DRUGS (4)
  1. TECNOMET [Concomitant]
     Active Substance: METHOTREXATE
     Indication: PRODUCT USED FOR UNKNOWN INDICATION
     Dosage: UNSPECIFIC DOSE
  2. DICLOFENAC [Suspect]
     Active Substance: DICLOFENAC
     Indication: PRODUCT USED FOR UNKNOWN INDICATION
     Route: 065
  3. HUMIRA [Suspect]
     Active Substance: ADALIMUMAB
     Indication: RHEUMATOID ARTHRITIS
     Route: 058
     Dates: start: 20160729, end: 20200311
  4. TECNOMET [Concomitant]
     Active Substance: METHOTREXATE
     Dosage: UNSPECIFIC DOSE

REACTIONS (5)
  - Weight decreased [Unknown]
  - Oropharyngeal pain [Unknown]
  - Full blood count abnormal [Unknown]
  - Anaemia [Not Recovered/Not Resolved]
  - Skin discolouration [Recovering/Resolving]

NARRATIVE: CASE EVENT DATE: 201910
